FAERS Safety Report 9512424 (Version 1)
Quarter: 2013Q1

REPORT INFORMATION
  Report Type: Spontaneous
  Country: US (occurrence: None)
  Receive Date: 20130305
  Receipt Date: 20130305
  Transmission Date: 20140127
  Serious: Yes (Other)
  Sender: FDA-Public Use
  Company Number: 163-21880-1210

PATIENT
  Age: 61 Year
  Sex: Female

DRUGS (1)
  1. REVLIMID [Suspect]
     Indication: PLASMA CELL MYELOMA
     Dosage: 10 MG, 14 IN 21 D, PO
     Dates: start: 20081029

REACTIONS (9)
  - Muscle spasms [None]
  - Rash pruritic [None]
  - Epistaxis [None]
  - Constipation [None]
  - Fatigue [None]
  - Dizziness [None]
  - Nausea [None]
  - Hepatic enzyme increased [None]
  - Rash [None]
